FAERS Safety Report 14797582 (Version 1)
Quarter: 2018Q2

REPORT INFORMATION
  Report Type: Spontaneous
  Country: DE (occurrence: DE)
  Receive Date: 20180424
  Receipt Date: 20180424
  Transmission Date: 20180711
  Serious: Yes (Life-Threatening, Hospitalization, Other)
  Sender: FDA-Public Use
  Company Number: DE-TEVA-2018-DE-884464

PATIENT
  Age: 57 Year
  Sex: Female
  Weight: 70 kg

DRUGS (20)
  1. DOXORUBICIN [Suspect]
     Active Substance: DOXORUBICIN
     Indication: PRODUCT USED FOR UNKNOWN INDICATION
     Route: 042
  2. SPIRONOLACTON [Concomitant]
     Active Substance: SPIRONOLACTONE
     Indication: HYPERTENSION
     Route: 065
     Dates: start: 20130108
  3. METODURA [Concomitant]
     Indication: HYPERTENSION
     Route: 065
     Dates: start: 20121009
  4. TORASEMID [Concomitant]
     Active Substance: TORSEMIDE
     Indication: HYPERTENSION
     Route: 065
     Dates: start: 20120705
  5. TORASEMID [Concomitant]
     Active Substance: TORSEMIDE
     Route: 065
     Dates: start: 20120717
  6. ENALAPRIL [Concomitant]
     Active Substance: ENALAPRIL
     Indication: HYPERTENSION
     Dosage: STRENGTH 40
     Route: 065
     Dates: start: 20120328
  7. FASLODEX [Concomitant]
     Active Substance: FULVESTRANT
     Indication: BREAST CANCER METASTATIC
     Dosage: ALTERNATED WITH IBANDRONAT
     Route: 065
     Dates: start: 20121204
  8. FASLODEX [Concomitant]
     Active Substance: FULVESTRANT
     Route: 065
     Dates: start: 20121204, end: 20130505
  9. AMLODIPIN [Concomitant]
     Active Substance: AMLODIPINE BESYLATE
     Indication: HYPERTENSION
     Route: 065
     Dates: start: 20120717
  10. HYDROCHLOROTHIAZIDE. [Concomitant]
     Active Substance: HYDROCHLOROTHIAZIDE
     Indication: HYPERTENSION
     Dosage: STRENGTH 25
     Route: 065
     Dates: start: 20120605
  11. IBANDRONATE SODIUM. [Concomitant]
     Active Substance: IBANDRONATE SODIUM
     Indication: BREAST CANCER METASTATIC
     Dosage: ALTERNATED WITH FASLODEX
     Route: 042
  12. AVASTIN [Suspect]
     Active Substance: BEVACIZUMAB
     Dosage: MAINTENANCE THERAPY
     Route: 042
     Dates: start: 201206
  13. ASPIRIN. [Concomitant]
     Active Substance: ASPIRIN
     Indication: CORONARY ARTERY STENOSIS
     Dosage: 100 MILLIGRAM DAILY;
     Route: 048
     Dates: start: 20130108
  14. PACLITAXEL. [Concomitant]
     Active Substance: PACLITAXEL
     Indication: BREAST CANCER METASTATIC
     Dosage: 6 CYCLES
     Route: 042
     Dates: start: 20120313
  15. CYCLOPHOSPHAMIDE. [Suspect]
     Active Substance: CYCLOPHOSPHAMIDE
     Indication: PRODUCT USED FOR UNKNOWN INDICATION
     Route: 042
  16. AVASTIN [Suspect]
     Active Substance: BEVACIZUMAB
     Indication: BREAST CANCER METASTATIC
     Dosage: THE DRUG WAS DISCONTINUED PROBABLY ON 10/FEB/2014. 6 CYCLES
     Route: 042
     Dates: start: 20120313
  17. AVASTIN [Suspect]
     Active Substance: BEVACIZUMAB
     Route: 042
     Dates: start: 20130205, end: 20140210
  18. QUINAPRIL. [Concomitant]
     Active Substance: QUINAPRIL
     Indication: HYPERTENSION
     Dosage: 5 MILLIGRAM DAILY;  EVERY DAYS
     Route: 048
  19. ASPIRIN. [Concomitant]
     Active Substance: ASPIRIN
     Indication: HEADACHE
     Route: 065
  20. TRIAMTEREN [Concomitant]
     Active Substance: TRIAMTERENE
     Route: 065
     Dates: start: 20120605

REACTIONS (3)
  - Myocardial infarction [Recovered/Resolved]
  - Hypertension [Unknown]
  - Headache [Recovered/Resolved]

NARRATIVE: CASE EVENT DATE: 201210
